FAERS Safety Report 21231637 (Version 1)
Quarter: 2022Q3

REPORT INFORMATION
  Report Type: Spontaneous
  Country: US (occurrence: US)
  Receive Date: 20220819
  Receipt Date: 20220819
  Transmission Date: 20221027
  Serious: No
  Sender: FDA-Public Use
  Company Number: US-ALLERGAN-2211182US

PATIENT
  Sex: Male

DRUGS (3)
  1. LASTACAFT [Suspect]
     Active Substance: ALCAFTADINE
     Indication: Dry eye
     Dosage: 2 GTT, QD
     Route: 047
  2. LASTACAFT [Suspect]
     Active Substance: ALCAFTADINE
     Indication: Eye pruritus
  3. LASTACAFT [Suspect]
     Active Substance: ALCAFTADINE
     Indication: Eye irritation

REACTIONS (1)
  - Drug ineffective [Unknown]
